FAERS Safety Report 23637388 (Version 1)
Quarter: 2024Q1

REPORT INFORMATION
  Report Type: Spontaneous
  Country: US (occurrence: US)
  Receive Date: 20240315
  Receipt Date: 20240315
  Transmission Date: 20240410
  Serious: Yes (Hospitalization, Other)
  Sender: FDA-Public Use
  Company Number: US-009507513-2403USA004371

PATIENT
  Age: 57 Year
  Sex: Female
  Weight: 57.5 kg

DRUGS (3)
  1. KEYTRUDA [Suspect]
     Active Substance: PEMBROLIZUMAB
     Indication: Metastatic uterine cancer
     Dosage: 200 MILLIGRAM, Q3W
     Route: 042
     Dates: start: 20210331, end: 20220216
  2. KEYTRUDA [Suspect]
     Active Substance: PEMBROLIZUMAB
     Dosage: 200 MILLIGRAM, Q3W
     Route: 042
     Dates: start: 20220216
  3. LENVATINIB MESYLATE [Suspect]
     Active Substance: LENVATINIB MESYLATE
     Indication: Metastatic uterine cancer
     Dosage: 8 MILLIGRAM, QD
     Route: 048
     Dates: start: 20210331

REACTIONS (2)
  - Immune-mediated pancreatitis [Unknown]
  - Product use issue [Unknown]

NARRATIVE: CASE EVENT DATE: 20210331
